FAERS Safety Report 9725321 (Version 2)
Quarter: 2014Q2

REPORT INFORMATION
  Report Type: Spontaneous
  Country: US (occurrence: None)
  Receive Date: 20131129
  Receipt Date: 20140401
  Transmission Date: 20141212
  Serious: Yes (Other)
  Sender: FDA-Public Use
  Company Number: 2013-US-003671

PATIENT
  Age: 53 Year
  Sex: Female
  Weight: 80.7 kg

DRUGS (9)
  1. XYREM (SODIUM OXYBATE) ORAL SOLUTION, 500MG/ML [Suspect]
     Indication: CATAPLEXY
     Dosage: 3 G, BID, ORAL
     Route: 048
     Dates: start: 200909
  2. XYREM (SODIUM OXYBATE) ORAL SOLUTION, 500MG/ML [Suspect]
     Indication: NARCOLEPSY
     Dosage: 3 G, BID, ORAL
     Route: 048
     Dates: start: 200909
  3. CITALOPRAM [Concomitant]
  4. PRAMIPEXOLE (PRAMIPEXOLE DIHYDROCHLORIDE) TABLET [Concomitant]
  5. FUROSEMIDE (FUROSEMIDDE) TABLET [Concomitant]
  6. PREDNISONE (PREDNISONE) TABLET [Concomitant]
  7. METOPROLOL (METOPROLOL TARTRATE) TABLET [Concomitant]
  8. VERAPAMIL (VERAPAMIL HYDROCHLORIDE) TABLET [Concomitant]
  9. BLACK COHOSH (BLACK COHOSH) TABLET [Concomitant]

REACTIONS (7)
  - Cholecystectomy [None]
  - Restless legs syndrome [None]
  - Myositis [None]
  - Intervertebral disc displacement [None]
  - Pain [None]
  - Fluid retention [None]
  - Depression [None]
